FAERS Safety Report 22153964 (Version 2)
Quarter: 2023Q2

REPORT INFORMATION
  Report Type: Spontaneous
  Country: FR (occurrence: FR)
  Receive Date: 20230330
  Receipt Date: 20230406
  Transmission Date: 20230722
  Serious: No
  Sender: FDA-Public Use
  Company Number: FR-SA-SAC20230327000464

PATIENT
  Age: 8 Month
  Sex: Female

DRUGS (1)
  1. MYOZYME [Suspect]
     Active Substance: ALGLUCOSIDASE ALFA
     Indication: Glycogen storage disease type II
     Dosage: 40 MG/KG, QW
     Route: 065
     Dates: start: 202210, end: 202303

REACTIONS (1)
  - Incorrect dose administered [Unknown]
